FAERS Safety Report 16780005 (Version 1)
Quarter: 2019Q3

REPORT INFORMATION
  Report Type: Spontaneous
  Country: FR (occurrence: FR)
  Receive Date: 20190906
  Receipt Date: 20190906
  Transmission Date: 20191005
  Serious: Yes (Hospitalization)
  Sender: FDA-Public Use
  Company Number: FR-JUBILANT CADISTA PHARMACEUTICALS-2019JUB00336

PATIENT
  Age: 10 Year
  Sex: Male

DRUGS (2)
  1. LEVOFLOXACIN. [Suspect]
     Active Substance: LEVOFLOXACIN
     Indication: LATENT TUBERCULOSIS
     Dosage: 15 MG/KG, 1X/DAY
     Route: 065
  2. PYRAZINAMIDE. [Suspect]
     Active Substance: PYRAZINAMIDE
     Indication: LATENT TUBERCULOSIS
     Dosage: 25 MG/KG, 1X/DAY
     Route: 065

REACTIONS (4)
  - Acute hepatic failure [Recovered/Resolved]
  - Hepatitis fulminant [Recovered/Resolved]
  - Hepatotoxicity [Recovered/Resolved]
  - Hepatic encephalopathy [Recovered/Resolved]
